FAERS Safety Report 5086087-4 (Version None)
Quarter: 2006Q3

REPORT INFORMATION
  Report Type: 
  Country: None (occurrence: None)
  Receive Date: 20060817
  Receipt Date: 20060810
  Transmission Date: 20061208
  Serious: Yes (Death)
  Sender: FDA-Public Use
  Company Number: SEWYE678311AUG06

PATIENT
  Age: 32 Year
  Sex: Female

DRUGS (2)
  1. ETHINYL ESTRADIOL AND LEVONORGESTREL [Suspect]
     Indication: PROPHYLAXIS
     Dosage: ORAL
     Route: 048
     Dates: start: 19951113
  2. ZOLOFT [Concomitant]

REACTIONS (9)
  - ABDOMINAL PAIN [None]
  - DIZZINESS [None]
  - GASTRIC DISORDER [None]
  - NAUSEA [None]
  - OEDEMA PERIPHERAL [None]
  - PULMONARY EMBOLISM [None]
  - RESPIRATORY ARREST [None]
  - THROMBOSIS [None]
  - VOMITING [None]
